FAERS Safety Report 11306640 (Version 3)
Quarter: 2017Q2

REPORT INFORMATION
  Report Type: Spontaneous
  Country: FR (occurrence: FR)
  Receive Date: 20150723
  Receipt Date: 20170601
  Transmission Date: 20170829
  Serious: Yes (Hospitalization, Disabling, Congenital Anomaly)
  Sender: FDA-Public Use
  Company Number: FR-ABBVIE-15P-056-1432036-00

PATIENT
  Sex: Male

DRUGS (1)
  1. DEPAKINE CHRONO [Suspect]
     Active Substance: VALPROATE SODIUM
     Indication: MATERNAL EXPOSURE TIMING UNSPECIFIED
     Route: 064

REACTIONS (21)
  - Autism spectrum disorder [Unknown]
  - Stridor [Unknown]
  - Intellectual disability [Unknown]
  - Aphasia [Not Recovered/Not Resolved]
  - Learning disorder [Unknown]
  - Speech disorder [Not Recovered/Not Resolved]
  - Communication disorder [Not Recovered/Not Resolved]
  - Synovitis [Unknown]
  - Trisomy 21 [Unknown]
  - Foetal exposure during pregnancy [Unknown]
  - Somnolence [Unknown]
  - Hypersensitivity [Unknown]
  - Tremor [Not Recovered/Not Resolved]
  - Respiratory disorder [Unknown]
  - Ear infection [Unknown]
  - Joint effusion [Unknown]
  - Echolalia [Unknown]
  - Psychomotor skills impaired [Not Recovered/Not Resolved]
  - Grunting [Unknown]
  - Hypotonia [Unknown]
  - Anxiety [Unknown]
